FAERS Safety Report 25624296 (Version 1)
Quarter: 2025Q3

REPORT INFORMATION
  Report Type: Spontaneous
  Country: IL (occurrence: IL)
  Receive Date: 20250730
  Receipt Date: 20250730
  Transmission Date: 20251021
  Serious: Yes (Other)
  Sender: TAKEDA
  Company Number: IL-TAKEDA-2025TUS067492

PATIENT
  Age: 2 Year
  Sex: Male

DRUGS (1)
  1. ENTYVIO [Suspect]
     Active Substance: VEDOLIZUMAB
     Indication: Product used for unknown indication
     Route: 064

REACTIONS (2)
  - Ascites [Unknown]
  - Foetal exposure during pregnancy [Unknown]
